FAERS Safety Report 7214646-9 (Version None)
Quarter: 2011Q1

REPORT INFORMATION
  Report Type: 
  Country: None (occurrence: None)
  Receive Date: 20110107
  Receipt Date: 20101230
  Transmission Date: 20110831
  Serious: Yes (Hospitalization)
  Sender: FDA-Public Use
  Company Number: US-ABBOTT-10P-163-0693621-00

PATIENT
  Sex: Female
  Weight: 65 kg

DRUGS (12)
  1. ELAVIL [Concomitant]
     Indication: DEFAECATION URGENCY
     Dates: start: 20080715
  2. IMURAN [Concomitant]
     Dates: start: 20090407, end: 20090420
  3. IRON [Concomitant]
     Indication: IRON DEFICIENCY ANAEMIA
     Dates: start: 20080301
  4. HUMIRA [Suspect]
     Indication: CROHN'S DISEASE
     Dosage: BASELINE
     Route: 058
     Dates: start: 20090319, end: 20090319
  5. IMURAN [Concomitant]
     Dates: start: 20090421
  6. CHOLECALCIFEROL [Concomitant]
     Indication: VITAMIN D DEFICIENCY
     Dates: start: 20080301
  7. IMURAN [Concomitant]
     Indication: CROHN'S DISEASE
     Dates: start: 20080827, end: 20090406
  8. HUMIRA [Suspect]
     Route: 058
  9. ENTOCORT EC [Concomitant]
     Indication: CROHN'S DISEASE
     Dates: start: 20090921
  10. PROTONIX [Concomitant]
     Indication: GASTROOESOPHAGEAL REFLUX DISEASE
     Dates: start: 20080301
  11. ULTRAM [Concomitant]
     Indication: ABDOMINAL PAIN
     Dosage: 1-2 EVERY 8 HOURS
     Dates: start: 20081013
  12. HUMIRA [Suspect]
     Route: 058

REACTIONS (2)
  - ABDOMINAL ADHESIONS [None]
  - INTESTINAL ANASTOMOSIS COMPLICATION [None]
